FAERS Safety Report 13206382 (Version 3)
Quarter: 2018Q2

REPORT INFORMATION
  Report Type: Spontaneous
  Country: US (occurrence: US)
  Receive Date: 20170209
  Receipt Date: 20180430
  Transmission Date: 20180711
  Serious: No
  Sender: FDA-Public Use
  Company Number: US-SA-2016SA198256

PATIENT
  Age: 81 Year
  Sex: Female

DRUGS (20)
  1. LEVEMIR [Concomitant]
     Active Substance: INSULIN DETEMIR
  2. LYRICA [Concomitant]
     Active Substance: PREGABALIN
  3. METOPROLOL. [Concomitant]
     Active Substance: METOPROLOL
  4. PRALUENT [Suspect]
     Active Substance: ALIROCUMAB
     Indication: TYPE V HYPERLIPIDAEMIA
     Route: 058
     Dates: start: 20160725
  5. ATORVASTATIN [Concomitant]
     Active Substance: ATORVASTATIN
     Route: 065
  6. FLEXPEN [Concomitant]
     Active Substance: UNSPECIFIED INGREDIENT
  7. LEVOTHYROXINE. [Concomitant]
     Active Substance: LEVOTHYROXINE
  8. TOLTERODINE [Concomitant]
     Active Substance: TOLTERODINE
  9. METFORMIN [Concomitant]
     Active Substance: METFORMIN HYDROCHLORIDE
     Dosage: 500 MG
  10. DEXILANT [Concomitant]
     Active Substance: DEXLANSOPRAZOLE
  11. RANEXA [Concomitant]
     Active Substance: RANOLAZINE
     Dosage: 1000 MG
  12. POLYETHYLENE GLYCOL [Concomitant]
     Active Substance: POLYETHYLENE GLYCOLS
     Dosage: POW 3350 NF
  13. CORICIDIN [Concomitant]
     Active Substance: ACETAMINOPHEN\CHLORPHENIRAMINE MALEATE
     Route: 065
  14. ESTRACE [Concomitant]
     Active Substance: ESTRADIOL
     Dosage: 0.1MG/GM
     Route: 067
  15. GABAPENTIN. [Concomitant]
     Active Substance: GABAPENTIN
  16. NIFEDIPINE. [Concomitant]
     Active Substance: NIFEDIPINE
  17. ALIROCUMAB PREFILLED PEN [Suspect]
     Active Substance: ALIROCUMAB
     Indication: TYPE V HYPERLIPIDAEMIA
     Dates: start: 20160725
  18. SUCRALFATE. [Concomitant]
     Active Substance: SUCRALFATE
  19. VALSARTAN. [Concomitant]
     Active Substance: VALSARTAN
  20. GLYXAMBI [Concomitant]
     Active Substance: EMPAGLIFLOZIN\LINAGLIPTIN
     Dosage: 25-5 MG

REACTIONS (6)
  - Injection site urticaria [Not Recovered/Not Resolved]
  - Injection site swelling [Not Recovered/Not Resolved]
  - Injection site mass [Not Recovered/Not Resolved]
  - Abdominal discomfort [Not Recovered/Not Resolved]
  - Diarrhoea [Not Recovered/Not Resolved]
  - Injection site bruising [Not Recovered/Not Resolved]

NARRATIVE: CASE EVENT DATE: 2016
